FAERS Safety Report 18256956 (Version 1)
Quarter: 2020Q3

REPORT INFORMATION
  Report Type: Spontaneous
  Country: PL (occurrence: PL)
  Receive Date: 20200911
  Receipt Date: 20200911
  Transmission Date: 20201103
  Serious: Yes (Other)
  Sender: FDA-Public Use
  Company Number: PL-MYLANLABS-2020M1076972

PATIENT
  Age: 6 Month
  Sex: Male
  Weight: 8.04 kg

DRUGS (1)
  1. KLACID [Suspect]
     Active Substance: CLARITHROMYCIN
     Indication: PNEUMONIA MYCOPLASMAL
     Dosage: 60 MILLIGRAM
     Route: 042
     Dates: start: 20200103, end: 20200108

REACTIONS (1)
  - Infusion site erythema [Recovered/Resolved]

NARRATIVE: CASE EVENT DATE: 20200108
